FAERS Safety Report 4601352-X (Version None)
Quarter: 2005Q1

REPORT INFORMATION
  Report Type: 
  Country: None (occurrence: None)
  Receive Date: 20050308
  Receipt Date: 20050211
  Transmission Date: 20050727
  Serious: Yes (Hospitalization, Other)
  Sender: FDA-Public Use
  Company Number: US-AMGEN-US114257

PATIENT
  Sex: Female

DRUGS (5)
  1. ENBREL [Suspect]
     Indication: PSORIASIS
     Route: 058
     Dates: start: 20041006, end: 20050116
  2. LO/OVRAL [Concomitant]
  3. PROZAC [Concomitant]
  4. VITAMIN B COMPLEX CAP [Concomitant]
  5. MULTI-VITAMINS [Concomitant]

REACTIONS (9)
  - DIZZINESS [None]
  - HYPERSENSITIVITY [None]
  - INFLUENZA LIKE ILLNESS [None]
  - NAUSEA [None]
  - PURPURA [None]
  - SKIN FISSURES [None]
  - THROMBOCYTOPENIA [None]
  - URTICARIA [None]
  - VIRAL INFECTION [None]
